FAERS Safety Report 12581808 (Version 2)
Quarter: 2016Q3

REPORT INFORMATION
  Report Type: Report from Study
  Country: BR (occurrence: BR)
  Receive Date: 20160722
  Receipt Date: 20160804
  Transmission Date: 20161109
  Serious: Yes (Hospitalization)
  Sender: FDA-Public Use
  Company Number: BR-BIOGEN-2016BI00267503

PATIENT
  Age: 34 Year
  Sex: Female

DRUGS (2)
  1. DIANE 35 (CYPROTERONE ACETATE/ETHINYL ESTRADIOL) [Concomitant]
     Indication: CONTRACEPTION
     Route: 065
  2. TYSABRI [Suspect]
     Active Substance: NATALIZUMAB
     Indication: MULTIPLE SCLEROSIS
     Route: 065
     Dates: start: 201510, end: 201604

REACTIONS (6)
  - Arthralgia [Recovered/Resolved]
  - Gait disturbance [Recovered/Resolved]
  - Feeling of despair [Unknown]
  - Drug-induced liver injury [Recovered/Resolved]
  - Multiple sclerosis relapse [Recovered/Resolved]
  - Bursitis [Recovered/Resolved]

NARRATIVE: CASE EVENT DATE: 201603
